FAERS Safety Report 8830164 (Version 1)
Quarter: 2012Q4

REPORT INFORMATION
  Report Type: Spontaneous
  Country: US (occurrence: None)
  Receive Date: 20121004
  Receipt Date: 20121004
  Transmission Date: 20130627
  Serious: Yes (Hospitalization)
  Sender: FDA-Public Use
  Company Number: UTC-023555

PATIENT
  Age: 49 Year
  Sex: Female
  Weight: 99.9 kg

DRUGS (3)
  1. TYVASO [Suspect]
     Indication: PULMONARY HYPERTENSION SECONDARY
     Dosage: (4 IN 1 D)
     Route: 055
     Dates: start: 20120703
  2. LETAIRIS [Concomitant]
  3. ASPIRIN [Concomitant]

REACTIONS (4)
  - Nausea [None]
  - Vomiting [None]
  - Malaise [None]
  - Haemoglobin decreased [None]
